FAERS Safety Report 17962654 (Version 1)
Quarter: 2020Q2

REPORT INFORMATION
  Report Type: Spontaneous
  Country: US (occurrence: US)
  Receive Date: 20200629
  Receipt Date: 20200629
  Transmission Date: 20200714
  Serious: No
  Sender: FDA-Public Use
  Company Number: None

PATIENT
  Age: 46 Year
  Sex: Male
  Weight: 89.81 kg

DRUGS (7)
  1. CARVEDILOL. [Concomitant]
     Active Substance: CARVEDILOL
  2. TRULICITY [Suspect]
     Active Substance: DULAGLUTIDE
     Indication: TYPE 2 DIABETES MELLITUS
     Route: 058
     Dates: start: 20190610, end: 20191128
  3. ATORVOSTATIN [Concomitant]
     Active Substance: ATORVASTATIN
  4. BRILINTA [Concomitant]
     Active Substance: TICAGRELOR
  5. FOLIC ACID. [Concomitant]
     Active Substance: FOLIC ACID
  6. LOSARTAN. [Concomitant]
     Active Substance: LOSARTAN
  7. GLYBURIDE. [Concomitant]
     Active Substance: GLYBURIDE

REACTIONS (3)
  - Abdominal distension [None]
  - Flatulence [None]
  - Abdominal discomfort [None]

NARRATIVE: CASE EVENT DATE: 20191102
